FAERS Safety Report 5274376-X (Version None)
Quarter: 2007Q1

REPORT INFORMATION
  Report Type: 
  Country: None (occurrence: None)
  Receive Date: 20070323
  Receipt Date: 20070312
  Transmission Date: 20070707
  Serious: Yes (Hospitalization, Other)
  Sender: FDA-Public Use
  Company Number: US-PFIZER INC-2006144614

PATIENT
  Sex: Female
  Weight: 82.3 kg

DRUGS (2)
  1. BEXTRA [Suspect]
     Indication: PAIN
     Route: 048
     Dates: start: 20030401, end: 20041031
  2. BEXTRA [Suspect]
     Indication: OSTEOARTHRITIS

REACTIONS (5)
  - AMNESIA [None]
  - AORTIC STENOSIS [None]
  - CAROTID ARTERY STENOSIS [None]
  - CEREBROVASCULAR ACCIDENT [None]
  - DEPRESSION [None]
